FAERS Safety Report 9875911 (Version 1)
Quarter: 2013Q2

REPORT INFORMATION
  Report Type: Spontaneous
  Country: US (occurrence: None)
  Receive Date: 20121130
  Receipt Date: 20121130
  Transmission Date: 20140414
  Serious: Yes (Other)
  Sender: FDA-Public Use
  Company Number: 2011BH003906

PATIENT
  Sex: 0

DRUGS (5)
  1. SUPRANE [Suspect]
     Indication: ARTHROSCOPY
  2. TORADOL (KETOROLAC TROMETHAMINE) [Suspect]
     Indication: ARTHROSCOPY
  3. ANCEF [Suspect]
     Indication: PROPHYLAXIS
  4. ONDANSETRON (ONDANSETRON) [Suspect]
     Indication: PROPHYLAXIS OF NAUSEA AND VOMITING
  5. DECADRON [Suspect]
     Indication: PROPHYLAXIS OF NAUSEA AND VOMITING

REACTIONS (1)
  - Hepatitis [None]
